FAERS Safety Report 16461594 (Version 2)
Quarter: 2021Q2

REPORT INFORMATION
  Report Type: Report from Study
  Country: FR (occurrence: FR)
  Receive Date: 20190621
  Receipt Date: 20210629
  Transmission Date: 20210716
  Serious: Yes (Hospitalization)
  Sender: FDA-Public Use
  Company Number: FR-ROCHE-2339830

PATIENT
  Age: 72 Year
  Sex: Female

DRUGS (4)
  1. BEVACIZUMAB. [Suspect]
     Active Substance: BEVACIZUMAB
     Indication: OVARIAN CANCER
     Dosage: MOST RECENT DOSE ON 25/FEB/2019
     Route: 042
     Dates: start: 20181105
  2. CARBOPLATIN. [Suspect]
     Active Substance: CARBOPLATIN
     Indication: OVARIAN CANCER
     Dosage: MOST RECENT DOSE ON 25/FEB/2019
     Route: 042
     Dates: start: 20181105
  3. DOXORUBICIN [Suspect]
     Active Substance: DOXORUBICIN
     Indication: OVARIAN CANCER
     Dosage: LAST DOSE ON 25/FEB/2019
     Route: 042
     Dates: start: 20181105
  4. ATEZOLIZUMAB. [Suspect]
     Active Substance: ATEZOLIZUMAB
     Indication: OVARIAN CANCER
     Dosage: MOST RECENT DOSE ON 25/FEB/2019
     Route: 042
     Dates: start: 20181105

REACTIONS (3)
  - Encephalitis [Recovered/Resolved with Sequelae]
  - Hypertension [Recovered/Resolved with Sequelae]
  - Dementia Alzheimer^s type [Recovered/Resolved with Sequelae]

NARRATIVE: CASE EVENT DATE: 20190311
